FAERS Safety Report 6132037-9 (Version None)
Quarter: 2009Q1

REPORT INFORMATION
  Report Type: 
  Country: None (occurrence: None)
  Receive Date: 20090323
  Receipt Date: 20090311
  Transmission Date: 20090719
  Serious: Yes (Disabling, Other)
  Sender: FDA-Public Use
  Company Number: 2009EU000345

PATIENT
  Sex: Female
  Weight: 54 kg

DRUGS (6)
  1. PROGRAF [Suspect]
     Indication: RENAL TRANSPLANT
     Dosage: 1 MG, OTHER, ORAL
     Route: 048
     Dates: start: 20070705, end: 20090310
  2. MYCOPHENOLATE MOFETIL [Suspect]
  3. LEVOTHYROXINE SODIUM [Suspect]
     Indication: HYPOTHYROIDISM
     Dosage: 100 UG, UID/QD, ORAL
     Route: 048
     Dates: start: 20050420
  4. ISRADIPINE [Suspect]
     Indication: HYPERTENSION
     Dosage: 100 UG, UID/QD, ORAL
     Route: 048
     Dates: start: 20060418
  5. MOPRAL (OMEPRAZOLE SODIUM) [Concomitant]
  6. IRBESARTAN [Concomitant]

REACTIONS (2)
  - CHOROIDITIS [None]
  - STRESS [None]
